FAERS Safety Report 17773614 (Version 9)
Quarter: 2022Q3

REPORT INFORMATION
  Report Type: Report from Study
  Country: US (occurrence: US)
  Receive Date: 20200513
  Receipt Date: 20220719
  Transmission Date: 20221027
  Serious: No
  Sender: FDA-Public Use
  Company Number: NVSC2020US128416

PATIENT
  Age: 38 Year
  Sex: Female

DRUGS (3)
  1. GILENYA [Suspect]
     Active Substance: FINGOLIMOD HYDROCHLORIDE
     Indication: Relapsing-remitting multiple sclerosis
     Dosage: 0.5 MG, QD
     Route: 048
     Dates: start: 20200509
  2. GILENYA [Suspect]
     Active Substance: FINGOLIMOD HYDROCHLORIDE
     Indication: Multiple sclerosis
     Dosage: 0.5 MG, QD
     Route: 048
  3. GILENYA [Suspect]
     Active Substance: FINGOLIMOD HYDROCHLORIDE
     Indication: Relapsing multiple sclerosis

REACTIONS (13)
  - Fatigue [Unknown]
  - Heart rate increased [Unknown]
  - Hypersensitivity [Unknown]
  - Temperature intolerance [Unknown]
  - Dysgraphia [Unknown]
  - Dysphemia [Not Recovered/Not Resolved]
  - Feeling abnormal [Unknown]
  - Tremor [Recovering/Resolving]
  - Muscular weakness [Unknown]
  - Mental fatigue [Unknown]
  - Cognitive disorder [Unknown]
  - Product dose omission issue [Unknown]
  - Drug monitoring procedure not performed [Unknown]

NARRATIVE: CASE EVENT DATE: 20200509
